FAERS Safety Report 11292572 (Version 1)
Quarter: 2015Q3

REPORT INFORMATION
  Report Type: Spontaneous
  Country: US (occurrence: None)
  Receive Date: 20150721
  Receipt Date: 20150721
  Transmission Date: 20151125
  Serious: Yes (Hospitalization, Other)
  Sender: FDA-Public Use
  Company Number: None

PATIENT
  Age: 48 Year
  Sex: Male
  Weight: 74.84 kg

DRUGS (7)
  1. VANCOMYCIN [Suspect]
     Active Substance: VANCOMYCIN
  2. SIMVASTATIN. [Concomitant]
     Active Substance: SIMVASTATIN
  3. ANCEF [Suspect]
     Active Substance: CEFAZOLIN SODIUM
     Indication: MENINGITIS BACTERIAL
     Route: 042
     Dates: start: 20150606, end: 20150614
  4. VERAPAMIL [Concomitant]
     Active Substance: VERAPAMIL HYDROCHLORIDE
  5. PROBIOTIC [Concomitant]
     Active Substance: PROBIOTICS NOS
  6. ZYRTEK [Concomitant]
     Active Substance: CETIRIZINE HYDROCHLORIDE
  7. ANCEF [Suspect]
     Active Substance: CEFAZOLIN SODIUM
     Indication: EXTRADURAL ABSCESS
     Route: 042
     Dates: start: 20150606, end: 20150614

REACTIONS (7)
  - Blister [None]
  - Skin disorder [None]
  - Genital rash [None]
  - Rash generalised [None]
  - Pain in extremity [None]
  - Skin exfoliation [None]
  - Genital erythema [None]

NARRATIVE: CASE EVENT DATE: 20150612
